FAERS Safety Report 21599713 (Version 4)
Quarter: 2022Q4

REPORT INFORMATION
  Report Type: Spontaneous
  Country: TH (occurrence: TH)
  Receive Date: 20221115
  Receipt Date: 20221124
  Transmission Date: 20230113
  Serious: Yes (Other)
  Sender: FDA-Public Use
  Company Number: TH-002147023-NVSC2022TH250868

PATIENT

DRUGS (16)
  1. RUXOLITINIB [Suspect]
     Active Substance: RUXOLITINIB
     Indication: Myelofibrosis
     Dosage: 10 UNK, BID (5 2X2)
     Route: 048
     Dates: start: 201611
  2. RUXOLITINIB [Suspect]
     Active Substance: RUXOLITINIB
     Indication: Chronic lymphocytic leukaemia
     Dosage: 20 UNK, BID (20 1X2)
     Route: 048
     Dates: start: 201711
  3. RUXOLITINIB [Suspect]
     Active Substance: RUXOLITINIB
     Dosage: 20 UNK, BID (20 1X2)
     Route: 048
     Dates: start: 201801
  4. RUXOLITINIB [Suspect]
     Active Substance: RUXOLITINIB
     Dosage: 5 UNK, BID (5 1X2)
     Route: 048
     Dates: start: 201801
  5. RUXOLITINIB [Suspect]
     Active Substance: RUXOLITINIB
     Dosage: 20 UNK, BID (20 1X2)
     Route: 048
     Dates: start: 201803
  6. RUXOLITINIB [Suspect]
     Active Substance: RUXOLITINIB
     Dosage: 20 UNK, BID (20 1X2)
     Route: 048
     Dates: start: 201805
  7. RUXOLITINIB [Suspect]
     Active Substance: RUXOLITINIB
     Dosage: 20 UNK, BID (20 1X2)
     Route: 048
     Dates: start: 201810
  8. RUXOLITINIB [Suspect]
     Active Substance: RUXOLITINIB
     Dosage: 20 UNK, BID (20 1X2)
     Route: 048
     Dates: start: 202205
  9. RUXOLITINIB [Suspect]
     Active Substance: RUXOLITINIB
     Dosage: 20 UNK, BID (20 1X2)
     Route: 048
     Dates: start: 202208
  10. EPOETIN ALFA [Suspect]
     Active Substance: ERYTHROPOIETIN
     Indication: Myelofibrosis
     Dosage: 5000 IU, BIW
     Route: 058
     Dates: start: 201611
  11. EPOETIN ALFA [Suspect]
     Active Substance: ERYTHROPOIETIN
     Indication: Chronic lymphocytic leukaemia
  12. HYDROXYUREA [Concomitant]
     Active Substance: HYDROXYUREA
     Indication: Product used for unknown indication
     Dosage: 1000 UNK, QD (500 2X1)
     Route: 048
     Dates: start: 201612
  13. HYDROXYUREA [Concomitant]
     Active Substance: HYDROXYUREA
     Dosage: 1500 UNK, QD (500 3X1)
     Route: 048
     Dates: start: 201708, end: 201711
  14. HYDROXYUREA [Concomitant]
     Active Substance: HYDROXYUREA
     Dosage: 500 UNK, QD
     Route: 048
     Dates: start: 201805, end: 201810
  15. ANAGRELIDE [Concomitant]
     Active Substance: ANAGRELIDE
     Indication: Product used for unknown indication
     Dosage: 1 UNK, BID (0.5 2X2) FROM MAY-JUL 2016
     Route: 048
  16. ANAGRELIDE [Concomitant]
     Active Substance: ANAGRELIDE
     Dosage: 0.5 UNK, QD (0.5 1X1)
     Route: 048
     Dates: start: 202208

REACTIONS (13)
  - Cytomegalovirus colitis [Unknown]
  - Product use in unapproved indication [Unknown]
  - Neutrophil count increased [Unknown]
  - White blood cell count increased [Unknown]
  - Platelet count increased [Unknown]
  - Haemoglobin decreased [Unknown]
  - Haematocrit decreased [Unknown]
  - Neutrophil count decreased [Unknown]
  - Actinomycosis [Unknown]
  - Laryngeal disorder [Unknown]
  - Granuloma skin [Unknown]
  - Gastric ulcer [Unknown]
  - Gastrostomy tube site complication [Unknown]

NARRATIVE: CASE EVENT DATE: 20161101
